FAERS Safety Report 25412649 (Version 1)
Quarter: 2025Q2

REPORT INFORMATION
  Report Type: Spontaneous
  Country: US (occurrence: US)
  Receive Date: 20250609
  Receipt Date: 20250609
  Transmission Date: 20250717
  Serious: Yes (Hospitalization)
  Sender: JOHNSON AND JOHNSON
  Company Number: US-JNJFOC-20250605330

PATIENT
  Age: 68 Year
  Sex: Male

DRUGS (1)
  1. OPSUMIT [Suspect]
     Active Substance: MACITENTAN
     Indication: Product used for unknown indication

REACTIONS (1)
  - Intensive care [Unknown]

NARRATIVE: CASE EVENT DATE: 20250604
